FAERS Safety Report 21122263 (Version 3)
Quarter: 2023Q1

REPORT INFORMATION
  Report Type: Report from Study
  Country: CA (occurrence: CA)
  Receive Date: 20220723
  Receipt Date: 20230117
  Transmission Date: 20230417
  Serious: Yes (Other)
  Sender: FDA-Public Use
  Company Number: CA-ABBVIE-22K-028-4476208-00

PATIENT
  Sex: Female

DRUGS (1)
  1. HUMIRA [Suspect]
     Active Substance: ADALIMUMAB
     Indication: Crohn^s disease
     Route: 058
     Dates: start: 20220127, end: 20220704

REACTIONS (15)
  - Transfusion [Not Recovered/Not Resolved]
  - Lip swelling [Unknown]
  - Pyrexia [Unknown]
  - Oral herpes [Unknown]
  - Rectal haemorrhage [Unknown]
  - Haemoglobin abnormal [Unknown]
  - Haemoglobin abnormal [Unknown]
  - Asthenia [Unknown]
  - Muscular weakness [Unknown]
  - Visual impairment [Unknown]
  - COVID-19 [Unknown]
  - Asthenia [Unknown]
  - Pain in extremity [Unknown]
  - Arthralgia [Unknown]
  - Gait disturbance [Unknown]

NARRATIVE: CASE EVENT DATE: 20220101
